FAERS Safety Report 23810761 (Version 1)
Quarter: 2024Q2

REPORT INFORMATION
  Report Type: Spontaneous
  Country: US (occurrence: US)
  Receive Date: 20240502
  Receipt Date: 20240502
  Transmission Date: 20240716
  Serious: No
  Sender: FDA-Public Use
  Company Number: US-PFIZER INC-202400097823

PATIENT
  Age: 75 Year
  Sex: Female

DRUGS (6)
  1. IBRANCE [Suspect]
     Active Substance: PALBOCICLIB
     Dosage: 125 MG, CYCLIC (1 CAPSULE DAILY FOR 21 DAYS, THEN 7 DAYS OFF)
     Route: 048
     Dates: start: 202311
  2. IBRANCE [Suspect]
     Active Substance: PALBOCICLIB
     Dosage: 125 MG, CYCLIC (7 DAYS ON, FOLLOWED BY 7 DAYS OFF)
     Route: 048
  3. IBRANCE [Suspect]
     Active Substance: PALBOCICLIB
     Dosage: 125 MG, CYCLIC (7 DAYS ON, FOLLOWED BY 10 DAYS OFF)
     Route: 048
  4. IBRANCE [Suspect]
     Active Substance: PALBOCICLIB
     Dosage: 125 MG, CYCLIC
     Route: 048
  5. XGEVA [Suspect]
     Active Substance: DENOSUMAB
     Dosage: UNK
  6. RA CALCIUM [Concomitant]
     Dosage: UNK

REACTIONS (2)
  - Dry skin [Unknown]
  - Blood test abnormal [Unknown]
